FAERS Safety Report 6136659-0 (Version None)
Quarter: 2009Q1

REPORT INFORMATION
  Report Type: 
  Country: None (occurrence: None)
  Receive Date: 20090330
  Receipt Date: 20090320
  Transmission Date: 20090719
  Serious: Yes (Other)
  Sender: FDA-Public Use
  Company Number: B0566760A

PATIENT
  Sex: Male

DRUGS (12)
  1. TELZIR [Suspect]
     Indication: HIV INFECTION
     Route: 048
     Dates: start: 20050208, end: 20050608
  2. EPIVIR [Suspect]
     Indication: HIV INFECTION
     Route: 048
  3. RETROVIR [Suspect]
     Indication: HIV INFECTION
     Route: 048
  4. COMBIVIR [Suspect]
     Indication: HIV INFECTION
     Route: 048
  5. KIVEXA [Suspect]
     Indication: HIV INFECTION
     Route: 048
  6. NORVIR [Suspect]
     Indication: HIV INFECTION
     Route: 065
  7. EMTRIVA [Suspect]
     Indication: HIV INFECTION
     Route: 065
  8. VIREAD [Suspect]
     Indication: HIV INFECTION
     Route: 065
  9. SUSTIVA [Suspect]
     Indication: HIV INFECTION
     Route: 065
  10. VIDEX [Suspect]
     Indication: HIV INFECTION
     Route: 065
  11. KALETRA [Suspect]
     Indication: HIV INFECTION
     Route: 065
  12. ZERIT [Suspect]
     Indication: HIV INFECTION
     Route: 065

REACTIONS (6)
  - DRUG RASH WITH EOSINOPHILIA AND SYSTEMIC SYMPTOMS [None]
  - DRUG RESISTANCE [None]
  - HAEMATOTOXICITY [None]
  - IMMUNE SYSTEM DISORDER [None]
  - LIPODYSTROPHY ACQUIRED [None]
  - SKIN DISORDER [None]
